FAERS Safety Report 11814380 (Version 1)
Quarter: 2015Q4

REPORT INFORMATION
  Report Type: Spontaneous
  Country: FR (occurrence: FR)
  Receive Date: 20151209
  Receipt Date: 20151209
  Transmission Date: 20160305
  Serious: Yes (Other)
  Sender: FDA-Public Use
  Company Number: FR-JNJFOC-20151201697

PATIENT

DRUGS (1)
  1. INFLIXIMAB, RECOMBINANT [Suspect]
     Active Substance: INFLIXIMAB
     Indication: TAKAYASU^S ARTERITIS
     Dosage: MEDIAN DOSE OF 5 MG/KG (3-7 MG/KG) AT WEEKS 0, 2, AND 6 AND THEN EVERY 6 WEEKS (4-8 WEEKS)
     Route: 042

REACTIONS (11)
  - Lung neoplasm malignant [Unknown]
  - Herpes zoster [Unknown]
  - Tuberculosis [Unknown]
  - Infusion related reaction [Unknown]
  - Erysipelas [Unknown]
  - Epstein-Barr virus infection [Unknown]
  - Pharyngitis [Unknown]
  - Drug intolerance [Unknown]
  - Product use issue [Unknown]
  - Drug ineffective [Unknown]
  - Off label use [Unknown]
